FAERS Safety Report 24105860 (Version 2)
Quarter: 2024Q3

REPORT INFORMATION
  Report Type: Spontaneous
  Country: JP (occurrence: JP)
  Receive Date: 20240717
  Receipt Date: 20240902
  Transmission Date: 20241016
  Serious: Yes (Hospitalization)
  Sender: IPSEN
  Company Number: JP-IPSEN Group, Research and Development-2024-13372

PATIENT
  Age: 41 Year
  Sex: Female

DRUGS (25)
  1. LANREOTIDE ACETATE [Suspect]
     Active Substance: LANREOTIDE ACETATE
     Indication: Gastroenteropancreatic neuroendocrine tumour disease
     Dosage: 60 MG PER 4-6 WEEKS
     Route: 058
     Dates: start: 20230617, end: 20231125
  2. LANREOTIDE ACETATE [Suspect]
     Active Substance: LANREOTIDE ACETATE
     Dosage: 60 MG PER 4 WEEKS
     Route: 058
     Dates: start: 20240406, end: 20240511
  3. LANREOTIDE ACETATE [Suspect]
     Active Substance: LANREOTIDE ACETATE
     Dosage: 120 MG PER FOUR WEEKS
     Route: 058
     Dates: start: 20240615, end: 20240615
  4. AMITIZA [Concomitant]
     Active Substance: LUBIPROSTONE
     Dosage: PO
     Route: 048
  5. PREDNISOLONE [Concomitant]
     Active Substance: PREDNISOLONE
     Dosage: PO
     Route: 048
  6. VONOPRAZAN FUMARATE [Concomitant]
     Active Substance: VONOPRAZAN FUMARATE
     Dosage: PO
     Route: 048
  7. ELDECALCITOL [Concomitant]
     Active Substance: ELDECALCITOL
     Dosage: PO
     Route: 048
  8. SYMPROIC [Concomitant]
     Active Substance: NALDEMEDINE
     Dosage: PO
     Route: 048
  9. LINZESS [Concomitant]
     Active Substance: LINACLOTIDE
     Dosage: PO
     Route: 048
  10. DIMETHICONE [Concomitant]
     Active Substance: DIMETHICONE
     Dosage: PO
     Route: 048
  11. CONSTAN [Concomitant]
     Dosage: PO
     Route: 048
  12. URSO [Concomitant]
     Active Substance: URSODIOL
     Dosage: PO
     Route: 048
  13. CALONAL [Concomitant]
     Active Substance: ACETAMINOPHEN
     Dosage: PO
     Route: 048
  14. POTASSIUM ASPARTATE [Concomitant]
     Active Substance: POTASSIUM ASPARTATE
     Dosage: PO
     Route: 048
  15. NALFURAFINE HYDROCHLORIDE [Concomitant]
     Active Substance: NALFURAFINE HYDROCHLORIDE
     Dosage: PO
     Route: 048
  16. CARBOHYDRATES\FATTY ACIDS\MINERALS\PROTEIN\VITAMINS [Concomitant]
     Active Substance: CARBOHYDRATES\FATTY ACIDS\MINERALS\PROTEIN\VITAMINS
     Dosage: PO
     Route: 048
  17. LAGNOS NF [Concomitant]
     Dosage: PO
     Route: 048
  18. HERBALS [Concomitant]
     Active Substance: HERBALS
     Dosage: PO
     Route: 048
  19. FLUNITRAZEPAM [Concomitant]
     Active Substance: FLUNITRAZEPAM
     Dosage: PO
     Route: 048
  20. LUNESTA [Concomitant]
     Active Substance: ESZOPICLONE
     Dosage: PO
     Route: 048
  21. MIRTAZAPINE [Concomitant]
     Active Substance: MIRTAZAPINE
     Dosage: PO
     Route: 048
  22. PURSENNID [Concomitant]
     Dosage: PO
     Route: 048
  23. KETOPROFEN [Concomitant]
     Active Substance: KETOPROFEN
     Route: 061
  24. FENTANYL [Concomitant]
     Active Substance: FENTANYL\FENTANYL CITRATE
     Route: 061
  25. OXINORM [Concomitant]
     Dosage: PO
     Route: 048

REACTIONS (3)
  - Pancreatitis acute [Recovered/Resolved]
  - Enterocolitis [Recovered/Resolved]
  - Prescribed underdose [Unknown]

NARRATIVE: CASE EVENT DATE: 20240624
